FAERS Safety Report 16945210 (Version 2)
Quarter: 2019Q4

REPORT INFORMATION
  Report Type: Spontaneous
  Country: JP (occurrence: JP)
  Receive Date: 20191022
  Receipt Date: 20191105
  Transmission Date: 20200122
  Serious: Yes (Hospitalization, Other)
  Sender: FDA-Public Use
  Company Number: JP-009507513-1910JPN002804J

PATIENT
  Age: 67 Year
  Sex: Male
  Weight: 65 kg

DRUGS (4)
  1. ROSUVASTATIN CALCIUM. [Concomitant]
     Active Substance: ROSUVASTATIN CALCIUM
     Dosage: 2.5 MILLIGRAM,AFTER BREAKFAST
     Route: 048
  2. INSULIN DEGLUDEC [Concomitant]
     Active Substance: INSULIN DEGLUDEC
     Dosage: 14 CREDITS BEFORE GOING TO BED
     Route: 065
  3. GLACTIV [Suspect]
     Active Substance: SITAGLIPTIN
     Dosage: 50 MILLIGRAM
     Route: 048
  4. INSULIN GLULISINE [Concomitant]
     Active Substance: INSULIN GLULISINE
     Dosage: 5 UNITS BEFORE BREAKFAST, 6 UNITS BEFORE LUNCH, 6 UNITS BEFORE DINNER
     Route: 065

REACTIONS (1)
  - Seronegative arthritis [Recovering/Resolving]
